FAERS Safety Report 9248726 (Version 1)
Quarter: 2013Q1

REPORT INFORMATION
  Report Type: Spontaneous
  Country: US (occurrence: None)
  Receive Date: 20130305
  Receipt Date: 20130305
  Transmission Date: 20140127
  Serious: Yes (Hospitalization)
  Sender: FDA-Public Use
  Company Number: 163-21880-12091634 (0)

PATIENT
  Age: 72 Year
  Sex: Male

DRUGS (4)
  1. REVLIMID [Suspect]
     Indication: PLASMA CELL MYELOMA
     Dosage: 25 MG, 1 IN 1 D, PO
     Route: 048
     Dates: start: 20120804, end: 20120919
  2. DEXAMETHASONE (DEXAMETHASONE) [Concomitant]
  3. AVODART (DUTASTERIDE) CAPSULES [Concomitant]
  4. AVINZA [Concomitant]

REACTIONS (1)
  - Anaemia [None]
